FAERS Safety Report 5327405-9 (Version None)
Quarter: 2007Q2

REPORT INFORMATION
  Report Type: 
  Country: None (occurrence: None)
  Receive Date: 20070511
  Receipt Date: 20070430
  Transmission Date: 20071010
  Serious: Yes (Death, Hospitalization)
  Sender: FDA-Public Use
  Company Number: 2007SS000018

PATIENT
  Sex: Female
  Weight: 45.4 kg

DRUGS (8)
  1. MYOBLOC [Suspect]
     Indication: SALIVARY HYPERSECRETION
     Dosage: X1
     Dates: start: 20060320, end: 20060320
  2. RILUTEK [Concomitant]
  3. BUPROPION HYDROCHLORIDE [Concomitant]
  4. TYLENOL [Concomitant]
  5. GUAIFENESIN [Concomitant]
  6. MOTRIN [Concomitant]
  7. MUCINEX [Concomitant]
  8. IMODIUM [Concomitant]

REACTIONS (8)
  - DRY MOUTH [None]
  - DYSPNOEA EXERTIONAL [None]
  - FALL [None]
  - NASOPHARYNGITIS [None]
  - NAUSEA [None]
  - RESPIRATORY ARREST [None]
  - SALIVA ALTERED [None]
  - VOMITING [None]
